FAERS Safety Report 6252966-5 (Version None)
Quarter: 2009Q3

REPORT INFORMATION
  Report Type: 
  Country: None (occurrence: None)
  Receive Date: 20090701
  Receipt Date: 20090624
  Transmission Date: 20100115
  Serious: Yes (Hospitalization)
  Sender: FDA-Public Use
  Company Number: B0580338A

PATIENT
  Sex: Male

DRUGS (1)
  1. AMOXICILLIN TRIHYDRATE [Suspect]
     Dosage: 1G SINGLE DOSE
     Route: 048
     Dates: start: 20090101, end: 20090101

REACTIONS (7)
  - CHILLS [None]
  - CYANOSIS [None]
  - DERMATITIS EXFOLIATIVE [None]
  - ERYTHEMA [None]
  - HYPERSENSITIVITY [None]
  - HYPERTHERMIA [None]
  - MEDICATION ERROR [None]
